FAERS Safety Report 6343217-1 (Version None)
Quarter: 2009Q3

REPORT INFORMATION
  Report Type: 
  Country: None (occurrence: None)
  Receive Date: 20090908
  Receipt Date: 20090901
  Transmission Date: 20100115
  Serious: Yes (Hospitalization)
  Sender: FDA-Public Use
  Company Number: FR-PFIZER INC-2009199801

PATIENT
  Age: 52 Year

DRUGS (6)
  1. SUTENT [Suspect]
     Indication: RENAL CANCER METASTATIC
     Dosage: UNK
  2. PARACETAMOL [Concomitant]
     Dosage: UNK
  3. SPASFON [Concomitant]
     Dosage: UNK
  4. PRIMPERAN [Concomitant]
     Dosage: UNK
  5. MOPRAL [Concomitant]
     Dosage: UNK
  6. RANITIDINE HCL [Concomitant]
     Dosage: UNK

REACTIONS (1)
  - OESOPHAGITIS ULCERATIVE [None]
